FAERS Safety Report 4931748-8 (Version None)
Quarter: 2006Q1

REPORT INFORMATION
  Report Type: 
  Country: None (occurrence: None)
  Receive Date: 20060303
  Receipt Date: 20050920
  Transmission Date: 20060701
  Serious: Yes (Hospitalization, Other)
  Sender: FDA-Public Use
  Company Number: PHNU2005DE03238

PATIENT
  Sex: Female
  Weight: 57 kg

DRUGS (4)
  1. FEMOSTON [Concomitant]
  2. SANDIMMUNE [Suspect]
     Indication: RASH PAPULAR
     Dosage: 150 MG, BID
     Route: 048
     Dates: start: 20050614, end: 20050810
  3. SANDIMMUNE [Suspect]
     Dosage: 1 ML, QD
     Dates: start: 20050811, end: 20050824
  4. MOBIC [Concomitant]
     Dosage: 7.5 MG DAILY

REACTIONS (8)
  - BLOOD CREATININE INCREASED [None]
  - BLOOD PRESSURE INCREASED [None]
  - HAIR GROWTH ABNORMAL [None]
  - HYPOACUSIS [None]
  - PARAESTHESIA [None]
  - RASH PAPULAR [None]
  - VAGINAL HAEMORRHAGE [None]
  - VISUAL ACUITY REDUCED [None]
